FAERS Safety Report 6031844-0 (Version None)
Quarter: 2008Q4

REPORT INFORMATION
  Report Type: 
  Country: None (occurrence: None)
  Receive Date: 20081231
  Receipt Date: 20081027
  Transmission Date: 20090506
  Serious: Yes (Hospitalization, Other)
  Sender: FDA-Public Use
  Company Number: 179472USA

PATIENT
  Age: 31 Year
  Sex: Female
  Weight: 50.8029 kg

DRUGS (3)
  1. LAMOTRIGINE [Suspect]
     Dosage: IN THE EVENING (200 MG, 2 IN 1 D) ,ORAL
     Route: 048
  2. ARIPIPRAZOLE [Concomitant]
  3. ALPRAZOLAM [Concomitant]

REACTIONS (2)
  - BLOOD CREATINE PHOSPHOKINASE INCREASED [None]
  - JOINT SWELLING [None]
